FAERS Safety Report 4387137-0 (Version None)
Quarter: 2004Q2

REPORT INFORMATION
  Report Type: 
  Country: None (occurrence: None)
  Receive Date: 20040630
  Receipt Date: 20040312
  Transmission Date: 20050107
  Serious: No
  Sender: FDA-Public Use
  Company Number: US-GLAXOSMITHKLINE-A0502580A

PATIENT
  Age: 6 Year
  Sex: Male

DRUGS (3)
  1. ADVAIR HFA [Suspect]
     Indication: ASTHMA
     Dosage: 1PUFF PER DAY
     Route: 055
     Dates: start: 20030801
  2. ACCOLATE [Concomitant]
  3. XOPENEX [Concomitant]

REACTIONS (4)
  - HOARSENESS [None]
  - IRRITABILITY [None]
  - PALLOR [None]
  - PSYCHOMOTOR HYPERACTIVITY [None]
